FAERS Safety Report 16367832 (Version 1)
Quarter: 2019Q2

REPORT INFORMATION
  Report Type: Spontaneous
  Country: US (occurrence: US)
  Receive Date: 20190529
  Receipt Date: 20190529
  Transmission Date: 20190711
  Serious: No
  Sender: FDA-Public Use
  Company Number: US-BAYER-2019-103021

PATIENT
  Age: 65 Year
  Sex: Male

DRUGS (6)
  1. CHLORAZEPATE [Concomitant]
     Active Substance: CLORAZEPATE DIPOTASSIUM
  2. ENALAPRIL [Suspect]
     Active Substance: ENALAPRIL
  3. CLARITIN [Suspect]
     Active Substance: LORATADINE
     Indication: HYPERSENSITIVITY
     Dosage: 1 DF, QD
     Dates: start: 20190523
  4. CLARITIN [Suspect]
     Active Substance: LORATADINE
     Indication: NASOPHARYNGITIS
  5. SIMVASTATIN. [Concomitant]
     Active Substance: SIMVASTATIN
  6. OXYBUTYNIN. [Concomitant]
     Active Substance: OXYBUTYNIN CHLORIDE

REACTIONS (1)
  - Extra dose administered [Recovered/Resolved]

NARRATIVE: CASE EVENT DATE: 20190524
